FAERS Safety Report 12866026 (Version 1)
Quarter: 2016Q4

REPORT INFORMATION
  Report Type: Spontaneous
  Country: FR (occurrence: FR)
  Receive Date: 20161020
  Receipt Date: 20161020
  Transmission Date: 20170207
  Serious: Yes (Hospitalization)
  Sender: FDA-Public Use
  Company Number: FR-SA-2016SA191592

PATIENT
  Age: 74 Year
  Sex: Male

DRUGS (11)
  1. DEPAKOTE [Concomitant]
     Active Substance: DIVALPROEX SODIUM
  2. KARDEGIC [Concomitant]
     Active Substance: ASPIRIN LYSINE
     Dosage: IN DOSE SACHET
  3. RACECADOTRIL [Concomitant]
     Active Substance: RACECADOTRIL
  4. OLANZAPINE. [Concomitant]
     Active Substance: OLANZAPINE
  5. APROVEL [Suspect]
     Active Substance: IRBESARTAN
     Indication: HYPERTENSION
     Route: 048
     Dates: end: 20160827
  6. ALDACTAZINE [Suspect]
     Active Substance: ALTHIAZIDE\SPIRONOLACTONE
     Indication: HYPERTENSION
     Route: 048
     Dates: end: 20160827
  7. METFORMIN [Concomitant]
     Active Substance: METFORMIN HYDROCHLORIDE
  8. CRESTOR [Concomitant]
     Active Substance: ROSUVASTATIN CALCIUM
  9. VOLTAREN [Suspect]
     Active Substance: DICLOFENAC SODIUM
     Indication: TENDON DISORDER
     Route: 048
     Dates: start: 20160821, end: 20160827
  10. OFLOCET [Concomitant]
     Active Substance: OFLOXACIN
  11. GLICLAZIDE [Concomitant]
     Active Substance: GLICLAZIDE

REACTIONS (2)
  - Hyperkalaemia [Recovered/Resolved]
  - Acute kidney injury [Recovering/Resolving]

NARRATIVE: CASE EVENT DATE: 20160827
